FAERS Safety Report 20890967 (Version 3)
Quarter: 2022Q3

REPORT INFORMATION
  Report Type: Report from Study
  Country: US (occurrence: US)
  Receive Date: 20220530
  Receipt Date: 20220718
  Transmission Date: 20221027
  Serious: Yes (Hospitalization, Other)
  Sender: FDA-Public Use
  Company Number: US-NOVARTISPH-NVSC2022US121003

PATIENT
  Age: 54 Year
  Sex: Male

DRUGS (2)
  1. ENTRESTO [Suspect]
     Active Substance: SACUBITRIL\VALSARTAN
     Indication: Cardiac failure
     Dosage: 1 DOSAGE FORM, BID (49.51MG)
     Route: 048
     Dates: start: 202112
  2. ENTRESTO [Suspect]
     Active Substance: SACUBITRIL\VALSARTAN
     Dosage: 1 DOSAGE FORM, BID (49.51MG)
     Route: 048
     Dates: start: 20220121

REACTIONS (4)
  - Hypertension [Recovered/Resolved]
  - Carotid artery stenosis [Recovering/Resolving]
  - Bell^s palsy [Unknown]
  - Feeding disorder [Unknown]

NARRATIVE: CASE EVENT DATE: 20220201
